FAERS Safety Report 4795107-3 (Version None)
Quarter: 2005Q4

REPORT INFORMATION
  Report Type: 
  Country: None (occurrence: None)
  Receive Date: 20051007
  Receipt Date: 20051007
  Transmission Date: 20060501
  Serious: No
  Sender: FDA-Public Use
  Company Number: None

PATIENT
  Age: 24 Year
  Sex: Male
  Weight: 85 kg

DRUGS (1)
  1. PENICILLIN [Suspect]
     Indication: SYPHILIS
     Dosage: 2 DOSES
     Dates: start: 20050920, end: 20050920

REACTIONS (1)
  - DRUG HYPERSENSITIVITY [None]
